FAERS Safety Report 6466510-0 (Version None)
Quarter: 2009Q4

REPORT INFORMATION
  Report Type: 
  Country: None (occurrence: None)
  Receive Date: 20091202
  Receipt Date: 20091124
  Transmission Date: 20100525
  Serious: Yes (Other)
  Sender: FDA-Public Use
  Company Number: JP-BAYER-200914621BYL

PATIENT
  Age: 79 Year
  Sex: Male
  Weight: 58 kg

DRUGS (5)
  1. NEXAVAR [Suspect]
     Indication: HEPATIC NEOPLASM MALIGNANT
     Dosage: UNIT DOSE: 200 MG
     Route: 048
     Dates: start: 20090731, end: 20090811
  2. NEXAVAR [Suspect]
     Dosage: UNIT DOSE: 200 MG
     Route: 048
     Dates: start: 20090811, end: 20090827
  3. NEXAVAR [Suspect]
     Dosage: UNIT DOSE: 200 MG
     Route: 048
     Dates: start: 20090827, end: 20091008
  4. OLMETEC [Concomitant]
     Route: 048
     Dates: start: 20090811
  5. OLMETEC [Concomitant]
     Route: 048
     Dates: start: 20090924

REACTIONS (2)
  - DIARRHOEA [None]
  - HYPERKALAEMIA [None]
